FAERS Safety Report 4439900-5 (Version None)
Quarter: 2004Q3

REPORT INFORMATION
  Report Type: 
  Country: None (occurrence: None)
  Receive Date: 20040831
  Receipt Date: 20040822
  Transmission Date: 20050211
  Serious: Yes (Other)
  Sender: FDA-Public Use
  Company Number: 200414140BCC

PATIENT
  Age: 44 Year
  Sex: Female
  Weight: 63.5036 kg

DRUGS (2)
  1. MILK OF MAGNESIA TAB [Suspect]
     Indication: CONSTIPATION
     Dosage: SEE IMAGE
     Route: 048
     Dates: start: 20040809, end: 20040822
  2. MILK OF MAGNESIA TAB [Suspect]
     Indication: CONSTIPATION
     Dosage: SEE IMAGE
     Route: 048
     Dates: start: 20040822

REACTIONS (5)
  - COLD SWEAT [None]
  - HEAD INJURY [None]
  - HYPERHIDROSIS [None]
  - LOSS OF CONSCIOUSNESS [None]
  - MEDICATION ERROR [None]
